FAERS Safety Report 6196229-5 (Version None)
Quarter: 2009Q2

REPORT INFORMATION
  Report Type: 
  Country: None (occurrence: None)
  Receive Date: 20090520
  Receipt Date: 20090511
  Transmission Date: 20091009
  Serious: Yes (Other)
  Sender: FDA-Public Use
  Company Number: PHHY2009BR18487

PATIENT
  Age: 83 Year
  Sex: Female
  Weight: 38 kg

DRUGS (11)
  1. LEPONEX [Suspect]
     Indication: TONGUE BITING
     Dosage: 25 MG, 1/2 TABLET, DAILY
     Route: 048
     Dates: start: 20090401
  2. LEPONEX [Suspect]
     Dosage: 25 MG/DAY
     Route: 048
  3. LEPONEX [Suspect]
     Dosage: 25 MG, 1/2 TABLET, DAILY
     Route: 048
  4. LEPONEX [Suspect]
     Dosage: 25 MG, 2 TABLET/DAY
     Route: 048
  5. LEPONEX [Suspect]
     Dosage: UNK
     Route: 048
     Dates: start: 20090504
  6. LEPONEX [Suspect]
     Dosage: 25 MG, 2 TABLETS/DAY
     Route: 048
     Dates: start: 20090511
  7. VENLAFAXINE HYDROCHLORIDE [Concomitant]
     Indication: DEPRESSION
     Dosage: 1 TABLET/DAY
     Route: 048
     Dates: start: 20040101
  8. MEMANTINE HCL [Concomitant]
     Indication: CARDIOVASCULAR DISORDER
     Dosage: BID
     Route: 048
     Dates: start: 20040101
  9. AKINETON [Concomitant]
     Dosage: 2 TABLETS/DAY
     Route: 048
     Dates: start: 20070101
  10. EUTHYROX [Concomitant]
     Indication: THYROID DISORDER
     Dosage: 1 TABLET/DAY
     Route: 048
     Dates: start: 20050101
  11. ALPRAZOLAM [Concomitant]
     Indication: ANXIOLYTIC THERAPY
     Dosage: 1/2 TABLET, BID
     Route: 048

REACTIONS (4)
  - EATING DISORDER [None]
  - GAIT DISTURBANCE [None]
  - HUNGER [None]
  - MUSCLE SPASMS [None]
